FAERS Safety Report 7291860-8 (Version None)
Quarter: 2011Q1

REPORT INFORMATION
  Report Type: 
  Country: None (occurrence: None)
  Receive Date: 20110214
  Receipt Date: 20101214
  Transmission Date: 20110831
  Serious: No
  Sender: FDA-Public Use
  Company Number: US-B.I. PHARMACEUTICALS,INC./RIDGEFIELD-2010-BP-14587BP

PATIENT
  Sex: Male

DRUGS (3)
  1. PRADAXA [Suspect]
     Indication: ATRIAL FIBRILLATION
     Dosage: 300 MG
     Route: 048
     Dates: start: 20101114, end: 20101203
  2. LANTUS [Concomitant]
     Indication: DIABETES MELLITUS
     Route: 058
  3. MEDICATIONS NOT FURTHER SPECIFIED [Concomitant]
     Indication: CARDIAC DISORDER

REACTIONS (4)
  - DYSPHAGIA [None]
  - NAUSEA [None]
  - ABDOMINAL DISCOMFORT [None]
  - DYSPEPSIA [None]
